FAERS Safety Report 11050082 (Version 1)
Quarter: 2015Q2

REPORT INFORMATION
  Report Type: Spontaneous
  Country: VN (occurrence: VN)
  Receive Date: 20150420
  Receipt Date: 20150420
  Transmission Date: 20150821
  Serious: Yes (Death, Hospitalization)
  Sender: FDA-Public Use
  Company Number: PHHY2015VN045712

PATIENT
  Age: 66 Year
  Sex: Female
  Weight: 45 kg

DRUGS (1)
  1. GLIVEC [Suspect]
     Active Substance: IMATINIB MESYLATE
     Indication: CHRONIC MYELOID LEUKAEMIA
     Dosage: 300 MG, QD
     Route: 065

REACTIONS (9)
  - Cachexia [Unknown]
  - Anaemia [Recovering/Resolving]
  - Generalised oedema [Unknown]
  - Platelet count decreased [Fatal]
  - Pneumonia [Unknown]
  - Red blood cell count decreased [Fatal]
  - Dyspnoea [Unknown]
  - White blood cell count decreased [Fatal]
  - Haemorrhage subcutaneous [Unknown]

NARRATIVE: CASE EVENT DATE: 20150223
